FAERS Safety Report 19000849 (Version 1)
Quarter: 2021Q1

REPORT INFORMATION
  Report Type: Report from Study
  Country: JP (occurrence: JP)
  Receive Date: 20210311
  Receipt Date: 20210311
  Transmission Date: 20210420
  Serious: Yes (Other)
  Sender: FDA-Public Use
  Company Number: JP-EISAI MEDICAL RESEARCH-EC-2021-089296

PATIENT
  Age: 75 Year
  Sex: Female

DRUGS (3)
  1. LENVATINIB [Suspect]
     Active Substance: LENVATINIB
     Dates: start: 20161002, end: 20161009
  2. LENVATINIB [Suspect]
     Active Substance: LENVATINIB
     Indication: ANAPLASTIC THYROID CANCER
     Route: 048
     Dates: start: 20160923, end: 20160928
  3. LENVATINIB [Suspect]
     Active Substance: LENVATINIB
     Dates: start: 20161015, end: 20161024

REACTIONS (1)
  - Periodontitis [Recovering/Resolving]

NARRATIVE: CASE EVENT DATE: 20161009
